FAERS Safety Report 4887072-5 (Version None)
Quarter: 2006Q1

REPORT INFORMATION
  Report Type: 
  Country: None (occurrence: None)
  Receive Date: 20060120
  Receipt Date: 20050608
  Transmission Date: 20060701
  Serious: Yes (Death, Hospitalization)
  Sender: FDA-Public Use
  Company Number: US-MERCK-0506USA01412

PATIENT
  Age: 70 Year
  Sex: Male
  Weight: 105 kg

DRUGS (3)
  1. VIOXX [Suspect]
     Indication: ARTHRITIS
     Route: 048
     Dates: start: 20030507, end: 20050622
  2. VIOXX [Suspect]
     Indication: BACK INJURY
     Route: 048
     Dates: start: 20030507, end: 20050622
  3. PROPOXYPHENE HYDROCHLORIDE [Concomitant]
     Route: 065

REACTIONS (14)
  - AMBLYOPIA [None]
  - CEREBROVASCULAR ACCIDENT [None]
  - CONTUSION [None]
  - DEATH [None]
  - DIPLOPIA [None]
  - HAEMATOMA [None]
  - HYPERLIPIDAEMIA [None]
  - NASOPHARYNGEAL CANCER [None]
  - PERNICIOUS ANAEMIA [None]
  - SINUSITIS [None]
  - STRABISMUS [None]
  - TEMPORAL ARTERITIS [None]
  - VIRAL UPPER RESPIRATORY TRACT INFECTION [None]
  - VITH NERVE PARALYSIS [None]
